FAERS Safety Report 15224805 (Version 1)
Quarter: 2018Q3

REPORT INFORMATION
  Report Type: Spontaneous
  Country: ES (occurrence: ES)
  Receive Date: 20180731
  Receipt Date: 20180731
  Transmission Date: 20181010
  Serious: Yes (Hospitalization, Other)
  Sender: FDA-Public Use
  Company Number: PHHY2018ES009215

PATIENT
  Age: 10 Year
  Sex: Female

DRUGS (1)
  1. IBUPROFEN. [Suspect]
     Active Substance: IBUPROFEN
     Indication: PYREXIA
     Route: 065

REACTIONS (15)
  - Stevens-Johnson syndrome [Unknown]
  - Limbal stem cell deficiency [Unknown]
  - Ulcerative keratitis [Unknown]
  - Distichiasis [Unknown]
  - Corneal neovascularisation [Unknown]
  - Visual acuity reduced [Unknown]
  - Rash maculo-papular [Unknown]
  - Dry eye [Unknown]
  - Photophobia [Unknown]
  - Toxic epidermal necrolysis [Unknown]
  - Keratitis [Unknown]
  - Corneal leukoma [Unknown]
  - Oral mucosal erythema [Unknown]
  - Conjunctivitis [Unknown]
  - Pyrexia [Unknown]
